FAERS Safety Report 5020975-X (Version None)
Quarter: 2006Q2

REPORT INFORMATION
  Report Type: 
  Country: None (occurrence: None)
  Receive Date: 20060606
  Receipt Date: 20060606
  Transmission Date: 20061013
  Serious: Yes (Hospitalization, Disabling, Other)
  Sender: FDA-Public Use
  Company Number: None

PATIENT
  Age: 47 Year
  Sex: Female
  Weight: 92.9874 kg

DRUGS (2)
  1. NUVARING [Suspect]
     Indication: CONTRACEPTION
     Dosage: ONE RING INSERTED VAGINALLY   EVERY 4 WEEKS  VAG
     Route: 067
  2. NUVARING [Suspect]
     Indication: MENSTRUATION IRREGULAR
     Dosage: ONE RING INSERTED VAGINALLY   EVERY 4 WEEKS  VAG
     Route: 067

REACTIONS (2)
  - HEPATIC ADENOMA [None]
  - HEPATIC HAEMORRHAGE [None]
